FAERS Safety Report 7923467-0 (Version None)
Quarter: 2011Q4

REPORT INFORMATION
  Report Type: 
  Country: None (occurrence: None)
  Receive Date: 20111117
  Receipt Date: 20110203
  Transmission Date: 20120403
  Serious: No
  Sender: FDA-Public Use
  Company Number: US-AMGEN-USASP2011004251

PATIENT
  Age: 42 Year
  Sex: Female

DRUGS (2)
  1. ENBREL [Suspect]
     Indication: RHEUMATOID ARTHRITIS
     Dosage: 50 MG, QWK
     Dates: start: 20091201
  2. TREXALL [Concomitant]
     Dates: start: 20090901

REACTIONS (3)
  - INJECTION SITE ERYTHEMA [None]
  - MENORRHAGIA [None]
  - INJECTION SITE WARMTH [None]
